FAERS Safety Report 6081095-9 (Version None)
Quarter: 2009Q1

REPORT INFORMATION
  Report Type: 
  Country: None (occurrence: None)
  Receive Date: 20090114
  Receipt Date: 20080610
  Transmission Date: 20090719
  Serious: Yes (Hospitalization, Other)
  Sender: FDA-Public Use
  Company Number: 276189

PATIENT
  Age: 74 Year
  Sex: Female
  Weight: 43.6 kg

DRUGS (5)
  1. NOVOLIN 70/30 [Suspect]
     Indication: DIABETES MELLITUS
     Dosage: SUBCUTANEOUS
     Route: 058
     Dates: start: 20040305
  2. METFORMIN HCL [Concomitant]
  3. CALTRATE /00108001/ (CALCIUM CARBONATE) [Concomitant]
  4. NIFEDIPINE [Concomitant]
  5. CYANOCOBALAMIN [Concomitant]

REACTIONS (1)
  - HYPOGLYCAEMIA [None]
